FAERS Safety Report 7596659 (Version 3)
Quarter: 2013Q1

REPORT INFORMATION
  Report Type: Spontaneous
  Country: MX (occurrence: MX)
  Receive Date: 20100920
  Receipt Date: 20130326
  Transmission Date: 20140127
  Serious: Yes (Other)
  Sender: FDA-Public Use
  Company Number: PHHY2010MX59340

PATIENT
  Age: 89 Year
  Sex: Female

DRUGS (4)
  1. DIOVAN [Suspect]
     Indication: HYPERTENSION
     Dosage: 1 DF (80 MG), DAILY
     Route: 048
     Dates: start: 200901
  2. DIOVAN [Suspect]
     Dosage: 1 DF (80 MG), DAILY
     Route: 048
     Dates: start: 201201, end: 201212
  3. HYDERGINE [Concomitant]
     Dosage: 2 DF, DAILY
     Dates: start: 201101
  4. ALPRAZOLAN [Concomitant]
     Dosage: 1 DF, DAILY
     Dates: start: 201101

REACTIONS (4)
  - Fall [Recovered/Resolved]
  - Joint contracture [Recovered/Resolved]
  - Osteoporosis [Not Recovered/Not Resolved]
  - Blood pressure decreased [Recovered/Resolved]
